FAERS Safety Report 4379502-2 (Version None)
Quarter: 2004Q2

REPORT INFORMATION
  Report Type: 
  Country: None (occurrence: None)
  Receive Date: 20040601
  Receipt Date: 20040407
  Transmission Date: 20050107
  Serious: No
  Sender: FDA-Public Use
  Company Number: WAES 0404USA00898

PATIENT
  Age: 67 Year
  Sex: Female

DRUGS (6)
  1. ZETIA [Suspect]
     Dosage: 10 MG/DAILY/PO
     Route: 048
     Dates: start: 20031201
  2. ALTACE [Concomitant]
  3. ASPIRIN [Concomitant]
  4. FOSAMAX [Concomitant]
  5. LIPITOR [Concomitant]
  6. NIASPAN [Concomitant]

REACTIONS (2)
  - DIARRHOEA [None]
  - FREQUENT BOWEL MOVEMENTS [None]
